FAERS Safety Report 7077368-3 (Version None)
Quarter: 2010Q4

REPORT INFORMATION
  Report Type: 
  Country: None (occurrence: None)
  Receive Date: 20101029
  Receipt Date: 20101029
  Transmission Date: 20110411
  Serious: Yes (Life-Threatening, Hospitalization, Other)
  Sender: FDA-Public Use
  Company Number: None

PATIENT
  Age: 23 Year
  Sex: Female
  Weight: 63.05 kg

DRUGS (1)
  1. RISPERDONE [Suspect]
     Indication: BIPOLAR DISORDER
     Dosage: ONE PILL EVERY NIGHT PO
     Route: 048
     Dates: start: 20101020, end: 20101027

REACTIONS (2)
  - DYSPNOEA [None]
  - PRODUCT QUALITY ISSUE [None]
